FAERS Safety Report 8130403-3 (Version None)
Quarter: 2012Q1

REPORT INFORMATION
  Report Type: 
  Country: None (occurrence: None)
  Receive Date: 20120210
  Receipt Date: 20120210
  Transmission Date: 20120608
  Serious: Yes (Hospitalization)
  Sender: FDA-Public Use
  Company Number: PHHO2011ES14111

PATIENT
  Weight: 80 kg

DRUGS (2)
  1. MEMANTINE [Suspect]
     Indication: COGNITIVE DISORDER
     Dosage: 20 MG, QD
     Route: 048
     Dates: start: 20080101, end: 20110817
  2. GILENYA [Suspect]
     Indication: MULTIPLE SCLEROSIS
     Dosage: 0.5 MG, QD
     Dates: start: 20080101, end: 20110817

REACTIONS (2)
  - CHEST PAIN [None]
  - DYSPNOEA [None]
